FAERS Safety Report 6285148-1 (Version None)
Quarter: 2009Q3

REPORT INFORMATION
  Report Type: 
  Country: None (occurrence: None)
  Receive Date: 20090727
  Receipt Date: 20090722
  Transmission Date: 20100115
  Serious: Yes (Hospitalization, Other)
  Sender: FDA-Public Use
  Company Number: US-BRISTOL-MYERS SQUIBB COMPANY-14618664

PATIENT
  Age: 47 Year
  Sex: Female

DRUGS (5)
  1. EFAVIRENZ [Suspect]
     Indication: ANTIRETROVIRAL THERAPY
     Dosage: TAKEN EVERY NIGHT
     Route: 048
  2. RALTEGRAVIR [Interacting]
     Indication: ANTIRETROVIRAL THERAPY
     Dosage: TAB RALTEGRAVIR POTASSIUM
     Route: 048
  3. METHADONE HCL [Interacting]
     Indication: DRUG WITHDRAWAL MAINTENANCE THERAPY
     Dosage: ALSO GIVEN 90MG/DAILY
     Route: 065
  4. TENOFOVIR DF + EMTRICITABINE [Interacting]
     Indication: ANTIRETROVIRAL THERAPY
     Dosage: 1 DF= 200-300 MG/DAY
     Route: 065
  5. VORICONAZOLE [Interacting]
     Indication: BRONCHOPULMONARY ASPERGILLOSIS
     Route: 065

REACTIONS (9)
  - ASPERGILLOSIS [None]
  - BRONCHOPULMONARY DISEASE [None]
  - DRUG INTERACTION [None]
  - DRUG LEVEL INCREASED [None]
  - DRUG WITHDRAWAL SYNDROME [None]
  - ELECTROCARDIOGRAM QT PROLONGED [None]
  - PNEUMOTHORAX [None]
  - TORSADE DE POINTES [None]
  - VENTRICULAR TACHYCARDIA [None]
